FAERS Safety Report 13765429 (Version 1)
Quarter: 2017Q3

REPORT INFORMATION
  Report Type: Spontaneous
  Country: GB (occurrence: GB)
  Receive Date: 20170718
  Receipt Date: 20170718
  Transmission Date: 20171127
  Serious: Yes (Other)
  Sender: FDA-Public Use
  Company Number: GB-PFIZER INC-357830

PATIENT
  Age: 22 Year
  Sex: Female

DRUGS (2)
  1. MODAFINIL. [Concomitant]
     Active Substance: MODAFINIL
     Dosage: 100 MG, UNK
     Route: 048
  2. ERYTHROMYCIN. [Suspect]
     Active Substance: ERYTHROMYCIN
     Indication: INFECTED BITE
     Dosage: 500 MG, UNK
     Route: 048
     Dates: start: 20090728, end: 20090729

REACTIONS (1)
  - Malaise [Not Recovered/Not Resolved]

NARRATIVE: CASE EVENT DATE: 20090729
